FAERS Safety Report 9898042 (Version 1)
Quarter: 2014Q1

REPORT INFORMATION
  Report Type: Spontaneous
  Country: US (occurrence: US)
  Receive Date: 20140214
  Receipt Date: 20140214
  Transmission Date: 20141002
  Serious: Yes (Death, Hospitalization)
  Sender: FDA-Public Use
  Company Number: US-CUBIST PHARMACEUTICAL, INC.-2014CBST000155

PATIENT
  Sex: 0

DRUGS (3)
  1. CUBICIN [Suspect]
     Indication: OSTEOMYELITIS
     Dosage: UNK UNK, UNK
     Route: 065
  2. CUBICIN [Suspect]
     Indication: OFF LABEL USE
  3. CEFTRIAXONE [Concomitant]
     Indication: OSTEOMYELITIS
     Route: 065

REACTIONS (2)
  - Cardiac failure [Fatal]
  - Eosinophilic pneumonia [Recovering/Resolving]
